FAERS Safety Report 8133695-X (Version None)
Quarter: 2012Q1

REPORT INFORMATION
  Report Type: 
  Country: None (occurrence: None)
  Receive Date: 20120213
  Receipt Date: 20120204
  Transmission Date: 20120608
  Serious: Yes (Other)
  Sender: FDA-Public Use
  Company Number: US-AMGEN-QUU346996

PATIENT
  Sex: Female
  Weight: 3.58 kg

DRUGS (1)
  1. ENBREL [Suspect]
     Dosage: 50 MG, QWK
     Route: 064
     Dates: start: 20060601

REACTIONS (3)
  - FOETAL HYPOKINESIA [None]
  - FOETAL HEART RATE DECREASED [None]
  - GASTROOESOPHAGEAL REFLUX DISEASE [None]
